FAERS Safety Report 6064855-X (Version None)
Quarter: 2009Q1

REPORT INFORMATION
  Report Type: 
  Country: None (occurrence: None)
  Receive Date: 20090204
  Receipt Date: 20090128
  Transmission Date: 20090719
  Serious: Yes (Death)
  Sender: FDA-Public Use
  Company Number: US-JNJFOC-20090200400

PATIENT
  Age: 54 Year
  Sex: Female
  Weight: 67.36 kg

DRUGS (5)
  1. FENTANYL-75 [Suspect]
     Indication: DRUG USE FOR UNKNOWN INDICATION
     Route: 065
  2. BENZODIAZEPINES [Concomitant]
  3. ALPRAZOLAM [Concomitant]
  4. OPIATES [Concomitant]
  5. HYDROCODONE [Concomitant]

REACTIONS (2)
  - MULTIPLE SCLEROSIS [None]
  - NARCOTIC INTOXICATION [None]
